FAERS Safety Report 8451504-6 (Version None)
Quarter: 2012Q2

REPORT INFORMATION
  Report Type: 
  Country: None (occurrence: None)
  Receive Date: 20120620
  Receipt Date: 20120305
  Transmission Date: 20120825
  Serious: No
  Sender: FDA-Public Use
  Company Number: US-VERTEX PHARMACEUTICALS INC.-AE-2012-003179

PATIENT
  Sex: Female
  Weight: 68.1 kg

DRUGS (3)
  1. PEGASYS [Concomitant]
     Indication: HEPATITIS C
     Route: 058
     Dates: start: 20111226
  2. INCIVEK [Suspect]
     Indication: HEPATITIS C
     Route: 048
     Dates: start: 20111226
  3. RIBAVIRIN [Concomitant]
     Indication: HEPATITIS C
     Route: 048
     Dates: start: 20111226

REACTIONS (8)
  - WEIGHT INCREASED [None]
  - PRURITUS [None]
  - SKIN BURNING SENSATION [None]
  - ANAEMIA [None]
  - DYSURIA [None]
  - HEAT RASH [None]
  - FATIGUE [None]
  - DRY EYE [None]
